FAERS Safety Report 9039367 (Version 1)
Quarter: 2013Q1

REPORT INFORMATION
  Report Type: Report from Study
  Country: US (occurrence: US)
  Receive Date: 20130129
  Receipt Date: 20130129
  Transmission Date: 20140127
  Serious: No
  Sender: FDA-Public Use
  Company Number: US-ABBOTT-12P-163-0928712-00

PATIENT
  Age: 54 Year
  Sex: Female

DRUGS (21)
  1. HUMIRA 40 MG/0.8 ML PEN [Suspect]
     Indication: CROHN^S DISEASE
     Dosage: LOADING DOSE
     Dates: start: 20120419
  2. ECOTRIN [Concomitant]
     Indication: CEREBROVASCULAR ACCIDENT PROPHYLAXIS
     Dosage: 81MG DAILY
  3. ADVAIR [Concomitant]
     Indication: ASTHMA
  4. GABAPENTIN [Concomitant]
     Indication: DIABETIC NEUROPATHY
  5. ASACOL [Concomitant]
     Indication: CROHN^S DISEASE
     Dosage: THREE TIMES DAILY
  6. LAMICTAL [Concomitant]
     Indication: MOOD ALTERED
     Dosage: IN THE MORNING
  7. LEVOTHYROXINE [Concomitant]
     Indication: BLOOD THYROID STIMULATING HORMONE DECREASED
     Dosage: 150MG DAILY
  8. LIPITOR [Concomitant]
     Indication: BLOOD CHOLESTEROL INCREASED
     Dosage: 40MG DAILY AT BEDTIME
  9. WELLBUTRIN [Concomitant]
     Indication: DEPRESSION
     Dosage: 300MG DAILY
  10. VESICARE [Concomitant]
     Indication: BLADDER SPASM
  11. ACIPHEX [Concomitant]
     Indication: HIATUS HERNIA
  12. MEGA 50 PLUS WOMEN [Concomitant]
     Indication: VITAMIN SUPPLEMENTATION
  13. B1 [Concomitant]
     Indication: VITAMIN B COMPLEX DEFICIENCY
  14. FOLIC ACID [Concomitant]
     Indication: VITAMIN SUPPLEMENTATION
  15. LEVEMIR [Concomitant]
     Indication: DIABETES MELLITUS
     Dosage: 30 UNITS IN MORNING AND 15 UNITS AT NIGHT
  16. NOVOLOG [Concomitant]
     Indication: DIABETES MELLITUS
     Dosage: SLIDING SCALE
  17. ULTRAM [Concomitant]
     Indication: NEUROPATHY PERIPHERAL
     Dosage: 300MG DAILY IN THE MORNING
  18. SINGULAIR [Concomitant]
     Indication: HYPERSENSITIVITY
  19. VAGIFEM [Concomitant]
     Indication: PRODUCT USED FOR UNKNOWN INDICATION
  20. XOPENEX HFA [Concomitant]
     Indication: ASTHMA
     Dosage: 2 PUFFS AS NEED
  21. TYLENOL #3 [Concomitant]
     Indication: NEUROPATHY PERIPHERAL

REACTIONS (5)
  - Injection site bruising [Recovering/Resolving]
  - Pyrexia [Recovering/Resolving]
  - Nausea [Recovering/Resolving]
  - Hyperhidrosis [Recovering/Resolving]
  - Injection site pain [Recovered/Resolved]
